FAERS Safety Report 5473318-1 (Version None)
Quarter: 2007Q4

REPORT INFORMATION
  Report Type: 
  Country: None (occurrence: None)
  Receive Date: 20071001
  Receipt Date: 20070920
  Transmission Date: 20080405
  Serious: Yes (Other)
  Sender: FDA-Public Use
  Company Number: US-JNJFOC-20070904429

PATIENT
  Sex: Female
  Weight: 66.68 kg

DRUGS (3)
  1. FENTANYL TRANSDERMAL SYSTEM [Suspect]
     Indication: SPINAL FRACTURE
     Route: 062
  2. UNSPECIFIED MEDICATION [Concomitant]
     Indication: BLOOD CHOLESTEROL
  3. UNSPECIFIED MEDICATION [Concomitant]
     Indication: BLOOD PRESSURE

REACTIONS (1)
  - MACULAR DEGENERATION [None]
